FAERS Safety Report 8900475 (Version 4)
Quarter: 2013Q2

REPORT INFORMATION
  Report Type: Report from Study
  Country: US (occurrence: US)
  Receive Date: 20121109
  Receipt Date: 20130513
  Transmission Date: 20140414
  Serious: Yes (Hospitalization)
  Sender: FDA-Public Use
  Company Number: US-EISAI INC-E2007-00939-CLI-US

PATIENT
  Age: 60 Year
  Sex: Female
  Weight: 52.7 kg

DRUGS (14)
  1. E2007 (PERAMPANEL) [Suspect]
     Indication: PARTIAL SEIZURES
     Dosage: TITRATION PHASE
     Route: 048
     Dates: start: 20070815, end: 20071119
  2. E2007 (PERAMPANEL) [Suspect]
     Route: 048
     Dates: start: 20071120, end: 20100420
  3. E2007 (PERAMPANEL) [Suspect]
     Route: 048
     Dates: start: 20100421, end: 20121107
  4. ASPIRIN [Concomitant]
     Indication: PROPHYLAXIS
     Route: 048
     Dates: start: 20120816
  5. MULTIVITAMIN [Concomitant]
     Indication: SUPPLEMENTATION THERAPY
     Dosage: 1 TABLET
     Route: 048
     Dates: start: 200410
  6. LEVETIRACETAM [Concomitant]
     Indication: CONVULSION
     Route: 048
     Dates: start: 20051010
  7. ACETAMINOPHEN RAPID RELEASE [Concomitant]
     Indication: HEADACHE
     Dosage: 500 MG
     Route: 048
     Dates: start: 200511
  8. ACETAMINOPHEN RAPID RELEASE [Concomitant]
     Indication: ARTHRALGIA
  9. IBUPROFEN [Concomitant]
     Indication: ARTHRALGIA
     Dosage: 200 MG
     Route: 048
     Dates: start: 200510
  10. LAMOTRIGINE [Concomitant]
     Indication: CONVULSION
     Route: 048
     Dates: start: 20080327
  11. NIASPAN [Concomitant]
     Indication: SUPPLEMENTATION THERAPY
     Dosage: NIGHTLY
     Route: 048
     Dates: start: 20110115
  12. CALCIUM [Concomitant]
     Indication: OSTEOPOROSIS
     Route: 048
     Dates: start: 200906
  13. VITAMIN D [Concomitant]
     Indication: OSTEOPOROSIS
     Route: 048
     Dates: start: 200906
  14. FOSAMAX [Concomitant]
     Indication: OSTEOPOROSIS
     Route: 048
     Dates: start: 20120205

REACTIONS (2)
  - Encephalopathy [Recovering/Resolving]
  - Gastroenteritis [Recovered/Resolved]
